APPROVED DRUG PRODUCT: TRIAMCINOLONE ACETONIDE
Active Ingredient: TRIAMCINOLONE ACETONIDE
Strength: 0.1%
Dosage Form/Route: OINTMENT;TOPICAL
Application: A040037 | Product #001 | TE Code: AT
Applicant: SUN PHARMA CANADA INC
Approved: Sep 30, 1994 | RLD: No | RS: No | Type: RX